FAERS Safety Report 7806852-7 (Version None)
Quarter: 2011Q4

REPORT INFORMATION
  Report Type: 
  Country: None (occurrence: None)
  Receive Date: 20111011
  Receipt Date: 20111004
  Transmission Date: 20120403
  Serious: Yes (Hospitalization)
  Sender: FDA-Public Use
  Company Number: JP-PFIZER INC-2011236831

PATIENT
  Age: 10 Year
  Sex: Female

DRUGS (1)
  1. ZITHROMAX [Suspect]
     Indication: PNEUMONIA MYCOPLASMAL
     Route: 048

REACTIONS (1)
  - HYPOAESTHESIA [None]
